FAERS Safety Report 6469757-2 (Version None)
Quarter: 2009Q4

REPORT INFORMATION
  Report Type: 
  Country: None (occurrence: None)
  Receive Date: 20091203
  Receipt Date: 20071112
  Transmission Date: 20100525
  Serious: Yes (Death, Hospitalization)
  Sender: FDA-Public Use
  Company Number: JP-ELI_LILLY_AND_COMPANY-JP200708004207

PATIENT
  Sex: Male
  Weight: 53.5 kg

DRUGS (7)
  1. GEMCITABINE HCL [Suspect]
     Indication: PANCREATIC CARCINOMA
     Dosage: 1400 MG, OTHER
     Route: 043
     Dates: start: 20070121, end: 20070128
  2. GEMCITABINE HCL [Suspect]
     Dosage: 1200 MG, OTHER
     Route: 042
     Dates: start: 20070206, end: 20070320
  3. OXYCONTIN [Concomitant]
     Dosage: 10 MG, UNK
     Route: 048
     Dates: start: 20070117
  4. MIYA-BM [Concomitant]
     Dosage: 3 G, UNK
     Route: 048
     Dates: start: 20070117
  5. MAGNESIUM OXIDE [Concomitant]
     Dosage: 1.5 G, UNK
     Route: 048
     Dates: start: 20070117
  6. PREDONINE [Concomitant]
     Indication: PROPHYLAXIS
     Dosage: 10 MG, UNK
     Route: 042
     Dates: start: 20070121, end: 20070320
  7. KYTRIL [Concomitant]
     Indication: PROPHYLAXIS
     Dosage: 3 MG, UNK
     Route: 042
     Dates: start: 20070121, end: 20070320

REACTIONS (3)
  - DUODENAL STENOSIS [None]
  - LUNG DISORDER [None]
  - METASTASES TO LIVER [None]
